FAERS Safety Report 12333050 (Version 3)
Quarter: 2016Q2

REPORT INFORMATION
  Report Type: Spontaneous
  Country: ES (occurrence: ES)
  Receive Date: 20160504
  Receipt Date: 20160526
  Transmission Date: 20160815
  Serious: Yes (Other)
  Sender: FDA-Public Use
  Company Number: ES-PFIZER INC-2016243088

PATIENT
  Age: 21 Year
  Sex: Female

DRUGS (1)
  1. LOETTE [Suspect]
     Active Substance: ETHINYL ESTRADIOL\LEVONORGESTREL
     Dosage: UNK
     Dates: start: 201312, end: 20160405

REACTIONS (9)
  - Neurological symptom [Recovered/Resolved]
  - Vitamin D deficiency [Unknown]
  - Swollen tongue [Recovered/Resolved]
  - Vitamin B12 deficiency [Unknown]
  - Gastritis [Not Recovered/Not Resolved]
  - Syncope [Recovered/Resolved]
  - Muscle spasms [Recovered/Resolved]
  - Muscular weakness [Recovered/Resolved]
  - Rash [Recovered/Resolved]

NARRATIVE: CASE EVENT DATE: 201410
